FAERS Safety Report 12195316 (Version 1)
Quarter: 2016Q1

REPORT INFORMATION
  Report Type: Spontaneous
  Country: US (occurrence: None)
  Receive Date: 20160318
  Receipt Date: 20160318
  Transmission Date: 20160526
  Serious: Yes (Hospitalization, Disabling, Other)
  Sender: FDA-Public Use
  Company Number: None

PATIENT
  Age: 57 Year
  Sex: Male
  Weight: 63.64 kg

DRUGS (2)
  1. ABILIFY [Suspect]
     Active Substance: ARIPIPRAZOLE
     Indication: ANGER
     Route: 048
     Dates: start: 20140717, end: 20140812
  2. ABILIFY [Suspect]
     Active Substance: ARIPIPRAZOLE
     Indication: DEPRESSION
     Route: 048
     Dates: start: 20140717, end: 20140812

REACTIONS (6)
  - Generalised tonic-clonic seizure [None]
  - Speech disorder [None]
  - Gait disturbance [None]
  - Urinary incontinence [None]
  - Anal incontinence [None]
  - Catatonia [None]

NARRATIVE: CASE EVENT DATE: 20141013
